FAERS Safety Report 13040984 (Version 1)
Quarter: 2016Q4

REPORT INFORMATION
  Report Type: Spontaneous
  Country: US (occurrence: US)
  Receive Date: 20161219
  Receipt Date: 20161219
  Transmission Date: 20170207
  Serious: No
  Sender: FDA-Public Use
  Company Number: US-ROCHE-1059223

PATIENT
  Sex: Male

DRUGS (1)
  1. ZELBORAF [Suspect]
     Active Substance: VEMURAFENIB
     Indication: PRODUCT USED FOR UNKNOWN INDICATION
     Route: 065

REACTIONS (11)
  - Mouth haemorrhage [Unknown]
  - Myalgia [Unknown]
  - Nausea [Unknown]
  - Decreased appetite [Unknown]
  - Neoplasm progression [Unknown]
  - Fatigue [Unknown]
  - Swelling [Unknown]
  - Arthralgia [Unknown]
  - Mass [Unknown]
  - Rash [Unknown]
  - Headache [Unknown]
